FAERS Safety Report 9316301 (Version 1)
Quarter: 2013Q2

REPORT INFORMATION
  Report Type: Spontaneous
  Country: AU (occurrence: None)
  Receive Date: 20130522
  Receipt Date: 20130522
  Transmission Date: 20140414
  Serious: Yes (Hospitalization)
  Sender: FDA-Public Use
  Company Number: 2013-000401

PATIENT
  Age: 69 Year
  Sex: Female
  Weight: 67 kg

DRUGS (1)
  1. ACTONEL (RISEDRONATE SODIUM) TABLET, UNKMG [Suspect]
     Indication: OSTEOPOROSIS
     Route: 048
     Dates: start: 200703, end: 201205

REACTIONS (1)
  - Atypical femur fracture [None]
